FAERS Safety Report 21423497 (Version 1)
Quarter: 2022Q4

REPORT INFORMATION
  Report Type: Spontaneous
  Country: US (occurrence: None)
  Receive Date: 20221007
  Receipt Date: 20221007
  Transmission Date: 20230113
  Serious: Yes (Disabling, Other)
  Sender: FDA-Public Use
  Company Number: None

PATIENT
  Age: 36 Year
  Sex: Female
  Weight: 90 kg

DRUGS (1)
  1. OFLOXACIN OPHTHALMIC [Suspect]
     Active Substance: OFLOXACIN
     Indication: Eye infection
     Dates: start: 20220715, end: 20220725

REACTIONS (17)
  - Product prescribing issue [None]
  - Tendon pain [None]
  - Bedridden [None]
  - Muscle spasms [None]
  - Dehydration [None]
  - Vertigo [None]
  - Tachycardia [None]
  - Migraine [None]
  - Tinnitus [None]
  - Dry eye [None]
  - Insomnia [None]
  - Fatigue [None]
  - Arthralgia [None]
  - Tendonitis [None]
  - Joint dislocation [None]
  - Joint dislocation [None]
  - Joint instability [None]

NARRATIVE: CASE EVENT DATE: 20220715
